FAERS Safety Report 9203160 (Version 4)
Quarter: 2013Q4

REPORT INFORMATION
  Report Type: Spontaneous
  Country: DE (occurrence: None)
  Receive Date: 20130329
  Receipt Date: 20131028
  Transmission Date: 20140711
  Serious: Yes (Death, Hospitalization)
  Sender: FDA-Public Use
  Company Number: SYM-2013-02003

PATIENT
  Age: 62 Year
  Sex: Female

DRUGS (7)
  1. FLUOROURACIL [Suspect]
     Indication: COLORECTAL CANCER METASTATIC
     Dosage: 640 MG, EVERY CYCLE, INTRAVENOUS BOLUS
     Route: 040
     Dates: start: 20130225, end: 20130225
  2. AFLIBERCEPT [Suspect]
     Indication: COLORECTAL CANCER METASTATIC
     Route: 040
     Dates: start: 20130225, end: 20130225
  3. IRINOTECAN (IRIOTECAN) (IRINOTECAN) [Suspect]
     Indication: COLORECTAL CANCER METASTATIC
     Dosage: 290 MG, EVERY CYCLE, INTRAVENOUS (NOT OTHERWISE SPECIFIED)
     Route: 042
     Dates: start: 20130225, end: 20130225
  4. LEUCOVORIN [Suspect]
     Indication: COLORECTAL CANCER METASTATIC
     Dosage: 640 MG, EVERY CYCLE, INTRAVENOUS (NOT OTHERWISE SPECIFIED)
     Route: 042
     Dates: start: 20130225, end: 20130225
  5. ANALGESICS (ANALGESICS) [Concomitant]
  6. GRANULOCYTE COLONY-STIMULATING FACTOR NOS [Concomitant]
  7. ANTIHYPERTENSIVES [Concomitant]

REACTIONS (11)
  - General physical health deterioration [None]
  - Hepatic failure [None]
  - Haemoglobin decreased [None]
  - Platelet count decreased [None]
  - Pain [None]
  - Fatigue [None]
  - Hypersomnia [None]
  - C-reactive protein increased [None]
  - Lipase decreased [None]
  - Metastatic neoplasm [None]
  - Malignant neoplasm progression [None]
